FAERS Safety Report 23157020 (Version 2)
Quarter: 2023Q4

REPORT INFORMATION
  Report Type: Other
  Country: BR (occurrence: None)
  Receive Date: 20231108
  Receipt Date: 20231110
  Transmission Date: 20240110
  Serious: Yes (Hospitalization)
  Sender: FDA-Public Use
  Company Number: BR-ROCHE-3451915

PATIENT
  Age: 46 Year
  Sex: Male

DRUGS (6)
  1. EMICIZUMAB [Suspect]
     Active Substance: EMICIZUMAB
     Indication: Prophylaxis
     Dosage: LOADING DOSE
     Route: 058
  2. EMICIZUMAB [Suspect]
     Active Substance: EMICIZUMAB
     Route: 058
  3. TRAMADOL [Concomitant]
     Active Substance: TRAMADOL\TRAMADOL HYDROCHLORIDE
  4. CLOPIDOGREL [Concomitant]
     Active Substance: CLOPIDOGREL BISULFATE
  5. SIMVASTATIN [Concomitant]
     Active Substance: SIMVASTATIN
  6. LEDIPASVIR\SOFOSBUVIR [Concomitant]
     Active Substance: LEDIPASVIR\SOFOSBUVIR
     Indication: Hepatitis C

REACTIONS (1)
  - Blue toe syndrome [Recovered/Resolved]
